FAERS Safety Report 25386897 (Version 2)
Quarter: 2025Q3

REPORT INFORMATION
  Report Type: Spontaneous
  Country: US (occurrence: US)
  Receive Date: 20250602
  Receipt Date: 20250722
  Transmission Date: 20251020
  Serious: Yes (Other)
  Sender: PFIZER
  Company Number: US-PFIZER INC-PV202500065336

PATIENT
  Age: 42 Year
  Sex: Male

DRUGS (4)
  1. XELJANZ XR [Suspect]
     Active Substance: TOFACITINIB CITRATE
     Indication: Rheumatoid arthritis
     Dosage: 11 MG, 1X/DAY
     Route: 048
     Dates: start: 202412
  2. XELJANZ XR [Suspect]
     Active Substance: TOFACITINIB CITRATE
     Indication: Psoriatic arthropathy
     Dosage: 11MG TABLET BY MOUTH ONCE DAILY
     Route: 048
     Dates: start: 202412
  3. RASUVO [Concomitant]
     Active Substance: METHOTREXATE SODIUM
  4. RASUVO [Concomitant]
     Active Substance: METHOTREXATE SODIUM
     Dates: start: 202412

REACTIONS (5)
  - Lower respiratory tract infection [Recovering/Resolving]
  - Blood cholesterol increased [Unknown]
  - Sinusitis [Recovering/Resolving]
  - Nasopharyngitis [Recovering/Resolving]
  - Infection susceptibility increased [Recovering/Resolving]

NARRATIVE: CASE EVENT DATE: 20250101
